FAERS Safety Report 7275407-8 (Version None)
Quarter: 2011Q1

REPORT INFORMATION
  Report Type: 
  Country: None (occurrence: None)
  Receive Date: 20110202
  Receipt Date: 20110202
  Transmission Date: 20110831
  Serious: Yes (Other)
  Sender: FDA-Public Use
  Company Number: None

PATIENT
  Sex: Female

DRUGS (1)
  1. ESTRACE [Suspect]
     Indication: HAEMORRHAGE
     Dosage: EVERYNIGHT FOR 2 WKS AT BEDTIME VAG : THEN 2X A WK FOR 3 MONTHS
     Route: 067
     Dates: start: 20110122, end: 20110201

REACTIONS (7)
  - DEVICE ISSUE [None]
  - PRODUCT LABEL CONFUSION [None]
  - DEVICE COMPONENT ISSUE [None]
  - MEDICATION ERROR [None]
  - DEVICE DIFFICULT TO USE [None]
  - INFECTION [None]
  - DEVICE PHYSICAL PROPERTY ISSUE [None]
